FAERS Safety Report 5570770-8 (Version None)
Quarter: 2007Q4

REPORT INFORMATION
  Report Type: 
  Country: None (occurrence: None)
  Receive Date: 20071221
  Receipt Date: 20071211
  Transmission Date: 20080405
  Serious: Yes (Hospitalization, Other)
  Sender: FDA-Public Use
  Company Number: US-ELI_LILLY_AND_COMPANY-US200711003173

PATIENT
  Age: 74 Year
  Sex: Female
  Weight: 54.421 kg

DRUGS (11)
  1. FORTEO [Suspect]
     Indication: OSTEOPOROSIS
     Dates: start: 20070731
  2. PRILOSEC [Concomitant]
  3. ULTRAM [Concomitant]
  4. ARTHROTEC [Concomitant]
  5. NEURONTIN [Concomitant]
  6. ASTELIN [Concomitant]
  7. DIGOXIN [Concomitant]
  8. NITROGLYCERIN [Concomitant]
  9. DILTIAZEM [Concomitant]
  10. CLINDAMYCIN HCL [Concomitant]
  11. VITAMINS [Concomitant]

REACTIONS (1)
  - OSTEOARTHRITIS [None]
